FAERS Safety Report 4320216-2 (Version None)
Quarter: 2004Q1

REPORT INFORMATION
  Report Type: 
  Country: None (occurrence: None)
  Receive Date: 20040317
  Receipt Date: 20040303
  Transmission Date: 20041129
  Serious: Yes (Hospitalization)
  Sender: FDA-Public Use
  Company Number: ZANA001135

PATIENT
  Age: 61 Year
  Sex: Male

DRUGS (9)
  1. TIZANIDINE HCL [Suspect]
     Indication: INTERVERTEBRAL DISC PROTRUSION
     Dosage: 3 MG DAILY ORAL
     Route: 048
     Dates: start: 20010615, end: 20010718
  2. LOXONIN (LOXOPROFEN SODIUM) [Suspect]
     Indication: INTERVERTEBRAL DISC PROTRUSION
     Dosage: 180 MG DAILY ORAL
     Route: 048
     Dates: start: 20010615, end: 20010718
  3. MUCOSTA (REBAMIPIDE) [Suspect]
     Indication: INTERVERTEBRAL DISC PROTRUSION
     Dosage: 300 MG DAILY ORAL
     Route: 048
     Dates: start: 20010615, end: 20010718
  4. VOLTAREN [Suspect]
     Indication: INTERVERTEBRAL DISC PROTRUSION
     Dosage: 50 MG ONCE RECTAL
     Route: 054
  5. MAGNESIUM OXIDE (MAGNESIUM OXIDE) [Suspect]
     Indication: INTERVERTEBRAL DISC PROTRUSION
     Dosage: 2 G DAILY ORAL
     Route: 048
     Dates: start: 20010615, end: 20010718
  6. PURSENNID (SENNA) [Suspect]
     Indication: INTERVERTEBRAL DISC PROTRUSION
     Dosage: 12 MG ONCE
  7. JUVELA (TOCOPHERYL NICOTINATE) [Suspect]
     Indication: DRUG USE FOR UNKNOWN INDICATION
     Dosage: 600 MG DAILY ORAL
     Route: 048
     Dates: start: 20010615, end: 20010718
  8. KETOPROFEN [Suspect]
     Indication: DRUG USE FOR UNKNOWN INDICATION
     Dosage: TOPICAL
     Route: 061
     Dates: end: 20010718
  9. XYLOCAINE [Concomitant]

REACTIONS (3)
  - HEPATIC FUNCTION ABNORMAL [None]
  - PRURITUS [None]
  - RASH [None]
